FAERS Safety Report 6268231-6 (Version None)
Quarter: 2009Q3

REPORT INFORMATION
  Report Type: 
  Country: None (occurrence: None)
  Receive Date: 20090713
  Receipt Date: 20090713
  Transmission Date: 20100115
  Serious: Yes (Other)
  Sender: FDA-Public Use
  Company Number: None

PATIENT

DRUGS (2)
  1. SODIUM CHLORIDE 0.9% [Suspect]
     Dates: start: 20090220, end: 20090709
  2. STERILE WATER FOR INJ. HOSPIRA [Suspect]
     Dates: start: 20090324, end: 20090709

REACTIONS (1)
  - HEPATITIS C [None]
